FAERS Safety Report 21567686 (Version 1)
Quarter: 2022Q4

REPORT INFORMATION
  Report Type: Spontaneous
  Country: US (occurrence: None)
  Receive Date: 20221108
  Receipt Date: 20221108
  Transmission Date: 20230113
  Serious: No
  Sender: FDA-Public Use
  Company Number: None

PATIENT
  Age: 41 Year
  Sex: Female
  Weight: 60.3 kg

DRUGS (1)
  1. TYRVAYA [Suspect]
     Active Substance: VARENICLINE TARTRATE
     Indication: Dry eye
     Dosage: OTHER QUANTITY : 1 SPRAY(S);?FREQUENCY : TWICE A DAY;?
     Route: 055
     Dates: start: 20221107, end: 20221107

REACTIONS (8)
  - Nasal discomfort [None]
  - Paraesthesia oral [None]
  - Anxiety [None]
  - Swollen tongue [None]
  - Dysphagia [None]
  - Eye pain [None]
  - Dry eye [None]
  - Hypersensitivity [None]

NARRATIVE: CASE EVENT DATE: 20221107
